FAERS Safety Report 5955931-8 (Version None)
Quarter: 2008Q4

REPORT INFORMATION
  Report Type: 
  Country: None (occurrence: None)
  Receive Date: 20081112
  Receipt Date: 20081030
  Transmission Date: 20090506
  Serious: Yes (Hospitalization)
  Sender: FDA-Public Use
  Company Number: 230999K08USA

PATIENT
  Age: 28 Year
  Sex: Male
  Weight: 59 kg

DRUGS (3)
  1. REBIF [Suspect]
     Indication: MULTIPLE SCLEROSIS
     Dosage: 44 MCG, 3 IN 1 WEEKS, SUBCUTANEOUS
     Route: 058
     Dates: start: 20080811
  2. RISPERDAL [Concomitant]
  3. KEPPRA [Concomitant]

REACTIONS (2)
  - COMPULSIVE SEXUAL BEHAVIOUR [None]
  - INCREASED APPETITE [None]
